FAERS Safety Report 19265511 (Version 1)
Quarter: 2021Q2

REPORT INFORMATION
  Report Type: Spontaneous
  Country: FR (occurrence: FR)
  Receive Date: 20210517
  Receipt Date: 20210517
  Transmission Date: 20210717
  Serious: Yes (Other)
  Sender: FDA-Public Use
  Company Number: FR-ACCORD-225392

PATIENT
  Age: 50 Year
  Sex: Male
  Weight: 72 kg

DRUGS (8)
  1. AMLODIPINE [Concomitant]
     Active Substance: AMLODIPINE BESYLATE
  2. RAMIPRIL. [Suspect]
     Active Substance: RAMIPRIL
     Indication: HYPERTENSION
     Route: 048
     Dates: start: 20191125
  3. METHOTREXATE. [Suspect]
     Active Substance: METHOTREXATE
     Indication: PSORIASIS
     Route: 048
     Dates: start: 20210208, end: 20210215
  4. SPECIAFOLDINE [Concomitant]
     Active Substance: FOLIC ACID
     Dosage: STRENGTH  5 MG
     Route: 048
  5. ENSTILAR [Concomitant]
     Active Substance: BETAMETHASONE DIPROPIONATE\CALCIPOTRIENE HYDRATE
     Route: 003
  6. RILMENIDINE BIOGARAN [Concomitant]
     Active Substance: RILMENIDINE
     Route: 048
  7. NEBIVOLOL. [Concomitant]
     Active Substance: NEBIVOLOL
  8. ROSUVASTATIN/ROSUVASTATIN CALCIUM [Concomitant]
     Active Substance: ROSUVASTATIN CALCIUM

REACTIONS (2)
  - Angioedema [Recovered/Resolved]
  - Oedema peripheral [Recovered/Resolved]

NARRATIVE: CASE EVENT DATE: 20210208
